FAERS Safety Report 16611787 (Version 1)
Quarter: 2019Q3

REPORT INFORMATION
  Report Type: Spontaneous
  Country: US (occurrence: US)
  Receive Date: 20190722
  Receipt Date: 20190722
  Transmission Date: 20191004
  Serious: No
  Sender: FDA-Public Use
  Company Number: US-ALLERGAN-1910507US

PATIENT
  Age: 58 Year
  Sex: Male

DRUGS (6)
  1. TRELSTAR [Suspect]
     Active Substance: TRIPTORELIN PAMOATE
     Indication: PROSTATE CANCER
     Dosage: 1 DF, SINGLE
     Route: 051
     Dates: start: 201903, end: 201903
  2. TRELSTAR [Suspect]
     Active Substance: TRIPTORELIN PAMOATE
     Dosage: UNK UNK, SINGLE
     Route: 051
     Dates: start: 2016, end: 2016
  3. PROTEIN VITAMINS [Concomitant]
     Indication: PRODUCT USED FOR UNKNOWN INDICATION
     Dosage: UNK
     Route: 065
  4. THYROID MEDICATION [Concomitant]
     Active Substance: UNSPECIFIED INGREDIENT
     Indication: THYROID DISORDER
     Dosage: 20 MG
     Route: 048
  5. BLOOD PRESSURE MEDICATION [Concomitant]
     Active Substance: UNSPECIFIED INGREDIENT
     Indication: BLOOD PRESSURE MEASUREMENT
     Dosage: UNK
     Route: 048
  6. TRELSTAR [Suspect]
     Active Substance: TRIPTORELIN PAMOATE
     Dosage: 1 DF, SINGLE
     Route: 051
     Dates: start: 20190130, end: 20190130

REACTIONS (6)
  - Dry mouth [Unknown]
  - Irritability [Unknown]
  - Headache [Unknown]
  - Dehydration [Unknown]
  - Expired product administered [Unknown]
  - Hot flush [Unknown]

NARRATIVE: CASE EVENT DATE: 201003
